FAERS Safety Report 15561652 (Version 1)
Quarter: 2018Q4

REPORT INFORMATION
  Report Type: Spontaneous
  Country: AU (occurrence: AU)
  Receive Date: 20181029
  Receipt Date: 20181029
  Transmission Date: 20190205
  Serious: Yes (Other)
  Sender: FDA-Public Use
  Company Number: AU-GLAXOSMITHKLINE-AU2018GSK194203

PATIENT
  Sex: Male

DRUGS (2)
  1. TAFENOQUINE [Suspect]
     Active Substance: TAFENOQUINE
     Indication: PRODUCT USED FOR UNKNOWN INDICATION
     Dosage: UNK
  2. DOXYCYCLINE. [Suspect]
     Active Substance: DOXYCYCLINE
     Indication: PRODUCT USED FOR UNKNOWN INDICATION
     Dosage: UNK

REACTIONS (24)
  - Malaria [Unknown]
  - Depressed mood [Unknown]
  - Impaired work ability [Unknown]
  - Abdominal discomfort [Unknown]
  - Feeling abnormal [Unknown]
  - Disturbance in attention [Unknown]
  - Gastric ulcer [Unknown]
  - Photosensitivity reaction [Unknown]
  - Irritable bowel syndrome [Unknown]
  - Decreased appetite [Unknown]
  - Tinnitus [Unknown]
  - Syncope [Unknown]
  - Memory impairment [Unknown]
  - Anxiety [Unknown]
  - Suicidal ideation [Unknown]
  - Mood altered [Unknown]
  - Abnormal dreams [Unknown]
  - Feeling cold [Unknown]
  - Depression [Unknown]
  - Irritability [Unknown]
  - Pyrexia [Unknown]
  - Brain oedema [Unknown]
  - Incontinence [Unknown]
  - Toxicity to various agents [Unknown]
